FAERS Safety Report 14018247 (Version 1)
Quarter: 2017Q3

REPORT INFORMATION
  Report Type: Spontaneous
  Country: US (occurrence: US)
  Receive Date: 20170928
  Receipt Date: 20170928
  Transmission Date: 20171128
  Serious: No
  Sender: FDA-Public Use
  Company Number: US-SUN PHARMACEUTICAL INDUSTRIES LTD-2017US-136863

PATIENT
  Sex: Female

DRUGS (2)
  1. LORATADINE. [Suspect]
     Active Substance: LORATADINE
     Indication: VIRAL UPPER RESPIRATORY TRACT INFECTION
     Dosage: UNK
     Route: 065
     Dates: start: 201702
  2. LORATADINE. [Suspect]
     Active Substance: LORATADINE
     Indication: OROPHARYNGEAL PAIN

REACTIONS (1)
  - Drug ineffective for unapproved indication [Unknown]

NARRATIVE: CASE EVENT DATE: 201702
